FAERS Safety Report 9254882 (Version 1)
Quarter: 2013Q2

REPORT INFORMATION
  Report Type: Spontaneous
  Country: US (occurrence: None)
  Receive Date: 20130419
  Receipt Date: 20130419
  Transmission Date: 20140414
  Serious: Yes (Hospitalization)
  Sender: FDA-Public Use
  Company Number: CIO13021274

PATIENT
  Age: 10 Year
  Sex: Female

DRUGS (1)
  1. CREST TARTAR PROTECTION TOOTHPASTE, FORM/FLAVOR UNKNOWN(SODIUM ACID PYROPHOSPHATE UNKNOWN UNK, SODIUM FLUORIDE 0.243 %, TETRAPOTASSIUM PYROPHOSPHATE UNKNOWN UNK, TETRASODIUM PYROPHOSPHATE 2.05-5.56 %) UNKNOWN, 1APPLIC [Suspect]
     Dosage: 1 APPLIC, 2/DAY, INTRAORAL
     Dates: start: 20130408, end: 20130409

REACTIONS (3)
  - Hypersensitivity [None]
  - Oedema peripheral [None]
  - Pruritus [None]
